FAERS Safety Report 18721847 (Version 1)
Quarter: 2021Q1

REPORT INFORMATION
  Report Type: Report from Study
  Country: CA (occurrence: CA)
  Receive Date: 20210111
  Receipt Date: 20210111
  Transmission Date: 20210419
  Serious: Yes (Other)
  Sender: FDA-Public Use
  Company Number: CA-JNJFOC-20210106301

PATIENT
  Age: 33 Year
  Sex: Male
  Weight: 70.82 kg

DRUGS (1)
  1. STELARA [Suspect]
     Active Substance: USTEKINUMAB
     Indication: CROHN^S DISEASE
     Route: 042
     Dates: start: 20201110

REACTIONS (3)
  - Skin abrasion [Unknown]
  - Fall [Unknown]
  - Periumbilical abscess [Not Recovered/Not Resolved]

NARRATIVE: CASE EVENT DATE: 202012
